FAERS Safety Report 5538458-7 (Version None)
Quarter: 2007Q4

REPORT INFORMATION
  Report Type: 
  Country: None (occurrence: None)
  Receive Date: 20071205
  Receipt Date: 20071120
  Transmission Date: 20080405
  Serious: Yes (Hospitalization)
  Sender: FDA-Public Use
  Company Number: 2007PV000047

PATIENT
  Age: 45 Year
  Sex: Female

DRUGS (2)
  1. DEPOCYT [Suspect]
     Indication: LYMPHOMA
     Dosage: 50 MG;X6;INTH
     Dates: end: 20070901
  2. DEXAMETHASONE TAB [Concomitant]

REACTIONS (2)
  - CAUDA EQUINA SYNDROME [None]
  - MENINGEAL DISORDER [None]
